FAERS Safety Report 7456755-5 (Version None)
Quarter: 2011Q2

REPORT INFORMATION
  Report Type: 
  Country: None (occurrence: None)
  Receive Date: 20110504
  Receipt Date: 20110422
  Transmission Date: 20111010
  Serious: Yes (Hospitalization)
  Sender: FDA-Public Use
  Company Number: AR-AMGEN-ARGSP2011020009

PATIENT
  Age: 59 Year
  Sex: Male
  Weight: 84 kg

DRUGS (6)
  1. ALISKIREN [Concomitant]
     Dosage: UNK
     Route: 048
     Dates: end: 20110301
  2. ROSUVASTATIN CALCIUM [Concomitant]
     Dosage: UNK
     Route: 048
     Dates: end: 20110301
  3. CLOPIDOGREL [Concomitant]
     Dosage: UNK
  4. ENBREL [Suspect]
     Dosage: 50 MG, MONTHLY
     Route: 058
     Dates: start: 20110401
  5. ENBREL [Suspect]
     Indication: RHEUMATOID ARTHRITIS
     Dosage: 50 MG, MONTHLY
     Route: 058
     Dates: start: 20060101, end: 20110208
  6. HYDROCHLOROTHIAZIDE [Concomitant]
     Dosage: UNK
     Route: 048
     Dates: end: 20110301

REACTIONS (1)
  - AORTIC DILATATION [None]
